FAERS Safety Report 9788393 (Version 4)
Quarter: 2016Q4

REPORT INFORMATION
  Report Type: Report from Study
  Country: None (occurrence: NL)
  Receive Date: 20131230
  Receipt Date: 20161130
  Transmission Date: 20170207
  Serious: Yes (Other)
  Sender: FDA-Public Use
  Company Number: NL-ABBVIE-13P-114-1181374-00

PATIENT
  Age: 31 Year
  Sex: Female
  Weight: 67 kg

DRUGS (7)
  1. CAPECITABINE. [Concomitant]
     Active Substance: CAPECITABINE
     Indication: PRODUCT USED FOR UNKNOWN INDICATION
  2. BONEFOS [Concomitant]
     Active Substance: CLODRONATE DISODIUM
     Indication: BREAST CANCER FEMALE
     Route: 048
     Dates: start: 20121219
  3. ANASTROZOL [Suspect]
     Active Substance: ANASTROZOLE
     Indication: BREAST CANCER FEMALE
     Route: 048
     Dates: start: 201504
  4. TAMOXIFEN [Concomitant]
     Active Substance: TAMOXIFEN
     Indication: BREAST CANCER FEMALE
     Route: 048
     Dates: start: 20131219, end: 201504
  5. LUCRIN DEPOT [Suspect]
     Active Substance: LEUPROLIDE ACETATE
     Indication: BREAST CANCER FEMALE
     Route: 058
     Dates: start: 20121219
  6. PREDNISONE. [Concomitant]
     Active Substance: PREDNISONE
     Indication: PRODUCT USED FOR UNKNOWN INDICATION
  7. CUTIVATE [Concomitant]
     Active Substance: FLUTICASONE PROPIONATE
     Indication: ECZEMA
     Dosage: ROUTE OF ADMINISTATIONS: CUTANEOUS

REACTIONS (4)
  - Breast cancer metastatic [Unknown]
  - Hot flush [Recovering/Resolving]
  - Skin reaction [Not Recovered/Not Resolved]
  - Back pain [Recovering/Resolving]

NARRATIVE: CASE EVENT DATE: 20121219
